FAERS Safety Report 21555248 (Version 1)
Quarter: 2022Q4

REPORT INFORMATION
  Report Type: Spontaneous
  Country: CH (occurrence: None)
  Receive Date: 20221104
  Receipt Date: 20221104
  Transmission Date: 20230112
  Serious: Yes (Hospitalization)
  Sender: FDA-Public Use
  Company Number: 2022A359533

PATIENT
  Age: 41 Year
  Sex: Female

DRUGS (2)
  1. EVUSHELD [Suspect]
     Active Substance: CILGAVIMAB\TIXAGEVIMAB
     Indication: COVID-19
     Dosage: EVUSHELD 1/2 (TIXAGEVIMABUM, CILGAVIMABUM) EACH 150MG PER 1.5 ML (100MG/ML) AS TWO SEPARATE, A300...
     Route: 030
     Dates: start: 20220808, end: 20220808
  2. OCREVUS [Concomitant]
     Active Substance: OCRELIZUMAB
     Dosage: OCREVUS 1/2 (OCRELIZUMAB), I.V. 1X 600MG EVERY 6 MONTHS600.0MG UNKNOWN
     Route: 042

REACTIONS (2)
  - Non-cardiac chest pain [Recovering/Resolving]
  - Gastrointestinal disorder [Recovering/Resolving]

NARRATIVE: CASE EVENT DATE: 20220809
